FAERS Safety Report 7315476-X (Version None)
Quarter: 2011Q1

REPORT INFORMATION
  Report Type: 
  Country: None (occurrence: None)
  Receive Date: 20110119
  Receipt Date: 20100730
  Transmission Date: 20110831
  Serious: Yes (Hospitalization)
  Sender: FDA-Public Use
  Company Number: A-NJ2010-38640

PATIENT
  Age: 55 Year
  Sex: Male

DRUGS (5)
  1. VENTAVIS [Suspect]
     Indication: PULMONARY ARTERIAL HYPERTENSION
     Dosage: 9 X DAY, RESPIRATORY
     Route: 055
     Dates: start: 20100726, end: 20100731
  2. COUMADIN [Concomitant]
  3. REVATIO [Concomitant]
  4. TRACLEER [Suspect]
     Indication: PULMONARY ARTERIAL HYPERTENSION
     Dosage: 62.5 MG, ORAL
     Route: 048
     Dates: start: 20100708
  5. CALCIUM CHANNEL BLOCKERS [Concomitant]

REACTIONS (4)
  - OEDEMA [None]
  - DYSPNOEA [None]
  - CHEST PAIN [None]
  - HYPOXIA [None]
